FAERS Safety Report 21357666 (Version 2)
Quarter: 2022Q4

REPORT INFORMATION
  Report Type: Spontaneous
  Country: US (occurrence: US)
  Receive Date: 20220921
  Receipt Date: 20221004
  Transmission Date: 20230113
  Serious: No
  Sender: FDA-Public Use
  Company Number: US-TEVA-2022-US-2074261

PATIENT
  Age: 60 Year
  Sex: Male

DRUGS (2)
  1. LIDOCAINE [Suspect]
     Active Substance: LIDOCAINE
     Indication: Back pain
     Dosage: 1 DOSAGE FORMS DAILY; ONE PATCH PER DAY
     Route: 062
     Dates: start: 20220826, end: 20220905
  2. XYLITOL [Concomitant]
     Active Substance: XYLITOL
     Indication: Back pain
     Dates: start: 2022

REACTIONS (6)
  - Muscle twitching [Unknown]
  - Muscle spasms [Unknown]
  - Fall [Unknown]
  - Product physical issue [Unknown]
  - Circumstance or information capable of leading to medication error [Unknown]
  - Product use in unapproved indication [Unknown]

NARRATIVE: CASE EVENT DATE: 20220826
